FAERS Safety Report 5065936-X (Version None)
Quarter: 2006Q3

REPORT INFORMATION
  Report Type: 
  Country: None (occurrence: None)
  Receive Date: 20060731
  Receipt Date: 20050926
  Transmission Date: 20061208
  Serious: Yes (Other)
  Sender: FDA-Public Use
  Company Number: 200518571GDDC

PATIENT

DRUGS (1)
  1. LANTUS [Suspect]

REACTIONS (1)
  - KETOACIDOSIS [None]
